FAERS Safety Report 15483638 (Version 1)
Quarter: 2018Q4

REPORT INFORMATION
  Report Type: Report from Study
  Country: RU (occurrence: RU)
  Receive Date: 20181010
  Receipt Date: 20181010
  Transmission Date: 20190205
  Serious: Yes (Other)
  Sender: FDA-Public Use
  Company Number: RU-ASTRAZENECA-2018SE45171

PATIENT
  Age: 81 Year
  Sex: Female
  Weight: 80 kg

DRUGS (9)
  1. BRILINTA [Suspect]
     Active Substance: TICAGRELOR
     Indication: MYOCARDIAL INFARCTION
     Route: 048
     Dates: start: 20180228, end: 201804
  2. ASPIRIN. [Concomitant]
     Active Substance: ASPIRIN
  3. BISOPROLOL [Concomitant]
     Active Substance: BISOPROLOL
  4. VEROSPIRON [Concomitant]
     Active Substance: SPIRONOLACTONE
  5. ASPIRIN CARDIO [Concomitant]
     Active Substance: ASPIRIN
  6. ATORIS [Concomitant]
     Active Substance: ATORVASTATIN CALCIUM
  7. NOLPAZA [Concomitant]
     Active Substance: PANTOPRAZOLE SODIUM
  8. PRESTANS [Concomitant]
  9. OMEZ [Concomitant]
     Active Substance: OMEPRAZOLE

REACTIONS (6)
  - Vascular injury [Unknown]
  - Abdominal pain upper [Not Recovered/Not Resolved]
  - Dyspnoea [Unknown]
  - Vascular stent occlusion [Unknown]
  - Epistaxis [Unknown]
  - Haematoma [Unknown]

NARRATIVE: CASE EVENT DATE: 201803
